FAERS Safety Report 19390566 (Version 1)
Quarter: 2021Q2

REPORT INFORMATION
  Report Type: Spontaneous
  Country: US (occurrence: US)
  Receive Date: 20210608
  Receipt Date: 20210608
  Transmission Date: 20210717
  Serious: Yes (Hospitalization, Other)
  Sender: FDA-Public Use
  Company Number: US-GW PHARMA-202106USGW02745

PATIENT

DRUGS (2)
  1. VIGABATRIN. [Suspect]
     Active Substance: VIGABATRIN
     Indication: SEIZURE
     Dosage: 1000 MG; FIRST SHIPPED ON 13 MAY 2019
     Dates: start: 201905
  2. EPIDIOLEX [Suspect]
     Active Substance: CANNABIDIOL
     Indication: TUBEROUS SCLEROSIS COMPLEX
     Dosage: 4.63 MG/KG/DAY, 50 MILLIGRAM, BID (0.5 ML TWICE A DAY FOR 1 WEEK, THEN TAKE 1 ML TWICE A DAY) (FIRST
     Dates: start: 2021

REACTIONS (1)
  - Seizure [Unknown]

NARRATIVE: CASE EVENT DATE: 2021
